FAERS Safety Report 5553915-5 (Version None)
Quarter: 2007Q4

REPORT INFORMATION
  Report Type: 
  Country: None (occurrence: None)
  Receive Date: 20071211
  Receipt Date: 20071127
  Transmission Date: 20080405
  Serious: Yes (Hospitalization)
  Sender: FDA-Public Use
  Company Number: 238897K07USA

PATIENT
  Age: 35 Year
  Sex: Female

DRUGS (3)
  1. REBIF [Suspect]
     Indication: MULTIPLE SCLEROSIS
     Dosage: SEE IMAGE
     Route: 058
     Dates: start: 20061201, end: 20070501
  2. REBIF [Suspect]
     Indication: MULTIPLE SCLEROSIS
     Dosage: SEE IMAGE
     Route: 058
     Dates: start: 20070916, end: 20071101
  3. REBIF [Suspect]
     Indication: MULTIPLE SCLEROSIS
     Dosage: SEE IMAGE
     Route: 058
     Dates: start: 20071101

REACTIONS (7)
  - ADENOCARCINOMA OF THE CERVIX [None]
  - INJECTION SITE REACTION [None]
  - LHERMITTE'S SIGN [None]
  - MUSCULAR WEAKNESS [None]
  - PAIN OF SKIN [None]
  - SENSATION OF HEAVINESS [None]
  - SKIN WARM [None]
